FAERS Safety Report 16242584 (Version 1)
Quarter: 2019Q2

REPORT INFORMATION
  Report Type: Spontaneous
  Country: ES (occurrence: ES)
  Receive Date: 20190426
  Receipt Date: 20190426
  Transmission Date: 20190711
  Serious: Yes (Other)
  Sender: FDA-Public Use
  Company Number: ES-TEVA-2019-ES-1042030

PATIENT
  Age: 72 Year
  Sex: Male

DRUGS (1)
  1. TRAMADOL 100 MG CAPSULA LIBERACION MODIFICADA (12 H) [Suspect]
     Active Substance: TRAMADOL
     Indication: BACK PAIN
     Route: 048
     Dates: start: 201902, end: 20190304

REACTIONS (3)
  - Tremor [Unknown]
  - Bradyphrenia [Unknown]
  - Product prescribing error [Recovered/Resolved]

NARRATIVE: CASE EVENT DATE: 201902
